FAERS Safety Report 6524761-0 (Version None)
Quarter: 2010Q1

REPORT INFORMATION
  Report Type: 
  Country: None (occurrence: None)
  Receive Date: 20100104
  Receipt Date: 20091228
  Transmission Date: 20100710
  Serious: Yes (Death)
  Sender: FDA-Public Use
  Company Number: CL-TEVA-219015ISR

PATIENT
  Age: 13 Year
  Sex: Female

DRUGS (6)
  1. CYCLOSPORINE [Suspect]
     Indication: MYELODYSPLASTIC SYNDROME
     Dosage: 10MG/KG/DAY
  2. PREDNISONE [Suspect]
     Indication: BONE MARROW FAILURE
     Dosage: 1MG/KG/DAY
     Route: 048
  3. CONTRACEPTIVES NOS [Suspect]
     Indication: METRORRHAGIA
     Route: 048
  4. METHYLPREDNISOLONE [Suspect]
     Indication: BONE MARROW FAILURE
     Dosage: 5MG/KG/DAY
  5. TRANEXAMIC ACID [Concomitant]
  6. ANTI-THYMOCYTE GLOBULIN NOS [Concomitant]
     Indication: BONE MARROW FAILURE

REACTIONS (1)
  - PELIOSIS HEPATIS [None]
